FAERS Safety Report 13095475 (Version 4)
Quarter: 2022Q4

REPORT INFORMATION
  Report Type: Spontaneous
  Country: GB (occurrence: GB)
  Receive Date: 20170108
  Receipt Date: 20221017
  Transmission Date: 20230113
  Serious: Yes (Hospitalization, Disabling)
  Sender: FDA-Public Use
  Company Number: GB-MYLANLABS-2017M1000526

PATIENT
  Sex: Male

DRUGS (2)
  1. CLOZARIL [Suspect]
     Active Substance: CLOZAPINE
     Indication: Schizophrenia
     Dosage: UNK
     Route: 048
     Dates: start: 1990
  2. CLOZARIL [Suspect]
     Active Substance: CLOZAPINE
     Dosage: UNK
     Route: 048
     Dates: start: 20090121

REACTIONS (10)
  - Dyskinesia [Unknown]
  - Psychotic disorder [Unknown]
  - Influenza like illness [Unknown]
  - Paronychia [Unknown]
  - Rash [Unknown]
  - Dizziness [Unknown]
  - Oral herpes [Unknown]
  - Gait inability [Unknown]
  - Parkinsonism [Unknown]
  - Muscle disorder [Unknown]
